FAERS Safety Report 8943316 (Version 1)
Quarter: 2012Q4

REPORT INFORMATION
  Report Type: 
  Country: BR (occurrence: BR)
  Receive Date: 20121204
  Receipt Date: 20121204
  Transmission Date: 20130627
  Serious: Yes (Other)
  Sender: FDA-Public Use
  Company Number: BR-AMGEN-BRASP2012047350

PATIENT
  Age: 49 Year
  Sex: Female
  Weight: 65 kg

DRUGS (17)
  1. ENBREL [Suspect]
     Indication: RHEUMATOID ARTHRITIS
     Dosage: 50 mg, qwk
     Dates: start: 201206, end: 2012
  2. ENBREL [Suspect]
     Dosage: 50 mg, once weekly
     Route: 058
     Dates: start: 201208, end: 20121026
  3. TRAMAL [Concomitant]
     Indication: BACK DISORDER
     Dosage: 50 mg, 2x/day
  4. CAPTOPRIL [Concomitant]
     Indication: HYPERTENSION
     Dosage: 10 mg, 2x/day
  5. LASIX                              /00032601/ [Concomitant]
     Indication: HYPERTENSION
     Dosage: 25 mg, 1x/day
  6. METFORMIN [Concomitant]
     Indication: DIABETES MELLITUS
     Dosage: 850 mg, 3x/day
  7. INSULIN [Concomitant]
     Indication: DIABETES MELLITUS
     Dosage: UNK
  8. SERTRALINE [Concomitant]
     Indication: DEPRESSION
     Dosage: 5 mg, 2x/day
  9. WARFARIN SODIUM [Concomitant]
     Indication: BLOOD DISORDER
     Dosage: 5 mg, 1x/day
  10. FOLIC ACID [Concomitant]
     Dosage: 5 mg, weekly
  11. CALCIUM [Concomitant]
     Indication: OSTEOARTHRITIS
     Dosage: 125 mg, 2x/day
  12. VITAMIN D3 [Concomitant]
     Dosage: three drops, every day
  13. AMINOPHYLLINE [Concomitant]
     Indication: ASTHMA
     Dosage: 100 mg, 2x/day
  14. AEROGOLD [Concomitant]
     Indication: ASTHMA
     Dosage: 100mcg every day
  15. METHOTREXATE [Concomitant]
     Dosage: once weekly
     Dates: start: 2011
  16. METHOTREXATE [Concomitant]
     Dosage: once weekly
     Dates: start: 2011
  17. AMLODIPINE                         /00972402/ [Concomitant]
     Indication: HYPERTENSION
     Dosage: 5 mg, UNK

REACTIONS (8)
  - Pain in extremity [Unknown]
  - Oedema peripheral [Not Recovered/Not Resolved]
  - Erythema [Not Recovered/Not Resolved]
  - Feeling hot [Not Recovered/Not Resolved]
  - Rheumatoid arthritis [Unknown]
  - Drug ineffective [Unknown]
  - Pain [Unknown]
  - Arthralgia [Unknown]
